FAERS Safety Report 15652392 (Version 1)
Quarter: 2018Q4

REPORT INFORMATION
  Report Type: Spontaneous
  Country: US (occurrence: US)
  Receive Date: 20181123
  Receipt Date: 20181123
  Transmission Date: 20190205
  Serious: No
  Sender: FDA-Public Use
  Company Number: US-FOUNDATIONCONSUMERHC-2018-US-014395

PATIENT
  Age: 19 Year
  Sex: Female
  Weight: 136.08 kg

DRUGS (1)
  1. PLAN B ONE-STEP [Suspect]
     Active Substance: LEVONORGESTREL
     Indication: POST COITAL CONTRACEPTION
     Dosage: 1.5MG
     Route: 048
     Dates: start: 20180815, end: 20180815

REACTIONS (9)
  - Vaginal haemorrhage [Unknown]
  - Abdominal pain upper [Recovered/Resolved]
  - Dysmenorrhoea [Recovered/Resolved]
  - Acne [Unknown]
  - Nausea [Recovered/Resolved]
  - Headache [Recovered/Resolved]
  - Menstruation delayed [Unknown]
  - Fatigue [Recovered/Resolved]
  - Fatigue [Unknown]

NARRATIVE: CASE EVENT DATE: 201808
